FAERS Safety Report 16049132 (Version 4)
Quarter: 2019Q4

REPORT INFORMATION
  Report Type: Spontaneous
  Country: US (occurrence: US)
  Receive Date: 20190307
  Receipt Date: 20191002
  Transmission Date: 20200122
  Serious: Yes (Other)
  Sender: FDA-Public Use
  Company Number: US-ASTRAZENECA-2018SF35043

PATIENT
  Age: 18343 Day
  Sex: Female

DRUGS (14)
  1. TOPIRAMATE. [Concomitant]
     Active Substance: TOPIRAMATE
  2. LOPERAMIDE [Concomitant]
     Active Substance: LOPERAMIDE
  3. MELOXICAM. [Concomitant]
     Active Substance: MELOXICAM
  4. PRILOSEC [Suspect]
     Active Substance: OMEPRAZOLE MAGNESIUM
     Indication: GASTROOESOPHAGEAL REFLUX DISEASE
     Dosage: GENERIC
     Route: 065
     Dates: start: 201301
  5. ONDANSETRON [Concomitant]
     Active Substance: ONDANSETRON
  6. LATUDA [Concomitant]
     Active Substance: LURASIDONE HYDROCHLORIDE
  7. PRILOSEC [Suspect]
     Active Substance: OMEPRAZOLE MAGNESIUM
     Indication: GASTROOESOPHAGEAL REFLUX DISEASE
     Route: 048
     Dates: start: 19980101, end: 20181231
  8. PRILOSEC [Suspect]
     Active Substance: OMEPRAZOLE MAGNESIUM
     Indication: GASTROOESOPHAGEAL REFLUX DISEASE
     Route: 048
     Dates: start: 201301
  9. LAMOTRIGINE. [Concomitant]
     Active Substance: LAMOTRIGINE
  10. VAGIFEM [Concomitant]
     Active Substance: ESTRADIOL
  11. WELCHOL [Concomitant]
     Active Substance: COLESEVELAM HYDROCHLORIDE
  12. NAPROXEN. [Concomitant]
     Active Substance: NAPROXEN
  13. CLONAZEPAM. [Concomitant]
     Active Substance: CLONAZEPAM
  14. TRAZODONE [Concomitant]
     Active Substance: TRAZODONE HYDROCHLORIDE

REACTIONS (4)
  - Renal failure [Unknown]
  - Chronic kidney disease [Unknown]
  - Acute kidney injury [Not Recovered/Not Resolved]
  - Renal injury [Unknown]

NARRATIVE: CASE EVENT DATE: 20180701
